FAERS Safety Report 19919819 (Version 2)
Quarter: 2021Q4

REPORT INFORMATION
  Report Type: Spontaneous
  Country: BR (occurrence: BR)
  Receive Date: 20211005
  Receipt Date: 20211012
  Transmission Date: 20220303
  Serious: Yes (Other)
  Sender: FDA-Public Use
  Company Number: NVSC2021BR223830

PATIENT
  Sex: Female
  Weight: 80 kg

DRUGS (3)
  1. DIOVAN [Suspect]
     Active Substance: VALSARTAN
     Indication: Hypertension
     Dosage: 320 MG, QD (STARTED ABOUT 3 YEARS AGO)
     Route: 048
  2. ATORVASTATIN CALCIUM [Suspect]
     Active Substance: ATORVASTATIN CALCIUM
     Indication: Blood cholesterol increased
     Dosage: 1 DF, QD (STARTED MORE THAN 3 YEARS AGO)
     Route: 048
  3. BISOPROLOL FUMARATE [Concomitant]
     Active Substance: BISOPROLOL FUMARATE
     Indication: Hypertension
     Dosage: 1 DF, QD (ABOUT 2 YEARS AGO)
     Route: 048

REACTIONS (2)
  - Cataract [Not Recovered/Not Resolved]
  - Age-related macular degeneration [Not Recovered/Not Resolved]
